FAERS Safety Report 7112819-7 (Version None)
Quarter: 2010Q4

REPORT INFORMATION
  Report Type: 
  Country: None (occurrence: None)
  Receive Date: 20101119
  Receipt Date: 20100824
  Transmission Date: 20110411
  Serious: Yes (Death)
  Sender: FDA-Public Use
  Company Number: US-BAYER-201017829NA

PATIENT
  Age: 57 Year
  Sex: Female
  Weight: 61 kg

DRUGS (29)
  1. MAGNEVIST [Suspect]
     Indication: NUCLEAR MAGNETIC RESONANCE IMAGING BRAIN
     Dosage: TOTAL DAILY DOSE: 14 ML
     Dates: start: 20010417, end: 20010417
  2. MAGNEVIST [Suspect]
     Dosage: TOTAL DAILY DOSE: 14 ML
     Dates: start: 20060121, end: 20060121
  3. MAGNEVIST [Suspect]
     Dosage: TOTAL DAILY DOSE: 14 ML
     Dates: start: 20060629, end: 20060629
  4. MAGNEVIST [Suspect]
     Dosage: TOTAL DAILY DOSE: 14 ML
     Dates: start: 20061002, end: 20061002
  5. OMNISCAN [Suspect]
     Indication: IMAGING PROCEDURE
  6. OPTIMARK [Suspect]
     Indication: IMAGING PROCEDURE
  7. MULTIHANCE [Suspect]
     Indication: IMAGING PROCEDURE
  8. PROHANCE [Suspect]
     Indication: IMAGING PROCEDURE
  9. COUMADIN [Concomitant]
  10. FOSRENOL [Concomitant]
  11. SENSIPAR [Concomitant]
  12. PREDNISONE [Concomitant]
  13. SILDENAFIL CITRATE [Concomitant]
  14. LABETALOL HCL [Concomitant]
  15. TOPROL-XL [Concomitant]
  16. DIATX [Concomitant]
  17. EPOGEN [Concomitant]
  18. LANTHANUM [Concomitant]
  19. QUINIDINE HCL [Concomitant]
  20. PHOSLO [Concomitant]
  21. QUININE [Concomitant]
  22. CARDIZEM [Concomitant]
  23. AGGRENOX [Concomitant]
  24. ZEMPLAR [Concomitant]
  25. DIGOXIN [Concomitant]
  26. ACTIVASE [Concomitant]
  27. PARICALCITOL [Concomitant]
  28. EPOGEN [Concomitant]
  29. MIDODRINE HYDROCHLORIDE [Concomitant]

REACTIONS (20)
  - ABASIA [None]
  - ARTHRALGIA [None]
  - DEFORMITY [None]
  - EXTREMITY CONTRACTURE [None]
  - GENERAL PHYSICAL HEALTH DETERIORATION [None]
  - JOINT CONTRACTURE [None]
  - JOINT RANGE OF MOTION DECREASED [None]
  - NEPHROGENIC SYSTEMIC FIBROSIS [None]
  - OEDEMA PERIPHERAL [None]
  - PAIN [None]
  - PEAU D'ORANGE [None]
  - PRURITUS GENERALISED [None]
  - SKIN BURNING SENSATION [None]
  - SKIN DISCOLOURATION [None]
  - SKIN EXFOLIATION [None]
  - SKIN FIBROSIS [None]
  - SKIN HYPERPIGMENTATION [None]
  - SKIN HYPERTROPHY [None]
  - SKIN PLAQUE [None]
  - SKIN TIGHTNESS [None]
